FAERS Safety Report 13027713 (Version 2)
Quarter: 2017Q2

REPORT INFORMATION
  Report Type: Spontaneous
  Country: US (occurrence: US)
  Receive Date: 20161214
  Receipt Date: 20170420
  Transmission Date: 20170830
  Serious: No
  Sender: FDA-Public Use
  Company Number: US-PFIZER INC-2016576738

PATIENT
  Age: 67 Year
  Sex: Female

DRUGS (5)
  1. XANAX [Concomitant]
     Active Substance: ALPRAZOLAM
     Dosage: UNK
  2. GABAPENTIN. [Suspect]
     Active Substance: GABAPENTIN
     Indication: FIBROMYALGIA
     Dosage: 100 MG, 1X/DAY [FOR 3 WEEKS]
     Dates: start: 20150824
  3. GABAPENTIN. [Suspect]
     Active Substance: GABAPENTIN
     Dosage: 100 MG, 3X/DAY
  4. KLONOPIN [Concomitant]
     Active Substance: CLONAZEPAM
     Dosage: UNK
  5. GABAPENTIN. [Suspect]
     Active Substance: GABAPENTIN
     Dosage: 200 MG, DAILY  [100X2]

REACTIONS (8)
  - Product use in unapproved indication [Unknown]
  - Tremor [Unknown]
  - Condition aggravated [Unknown]
  - Psychomotor hyperactivity [Unknown]
  - Palpitations [Unknown]
  - Anxiety [Unknown]
  - Heart rate abnormal [Unknown]
  - Insomnia [Unknown]
